FAERS Safety Report 18778291 (Version 3)
Quarter: 2021Q1

REPORT INFORMATION
  Report Type: Report from Study
  Country: CO (occurrence: CO)
  Receive Date: 20210123
  Receipt Date: 20210226
  Transmission Date: 20210419
  Serious: Yes (Other)
  Sender: FDA-Public Use
  Company Number: CO-TAKEDA-2020TUS023849

PATIENT
  Age: 35 Year
  Sex: Male
  Weight: 72 kg

DRUGS (5)
  1. VEDOLIZUMAB [Suspect]
     Active Substance: VEDOLIZUMAB
     Indication: COLITIS ULCERATIVE
     Dosage: 300 MILLIGRAM
     Route: 042
     Dates: start: 20191210
  2. MESALAZINE [Concomitant]
     Active Substance: MESALAMINE
     Dosage: 4 GRAM
     Route: 054
  3. ENTEROGERMINA [BACILLUS SUBTILIS] [Concomitant]
  4. VITAMIN D NOS [Concomitant]
     Active Substance: VITAMIN D NOS
     Dosage: UNK UNK, QD
  5. VITAMIN C + ZINC [Concomitant]
     Active Substance: ASCORBIC ACID\ZINC
     Dosage: UNK UNK, QD

REACTIONS (10)
  - Vomiting [Not Recovered/Not Resolved]
  - Gastrointestinal pain [Not Recovered/Not Resolved]
  - Diarrhoea [Not Recovered/Not Resolved]
  - Headache [Not Recovered/Not Resolved]
  - COVID-19 [Unknown]
  - Haematochezia [Not Recovered/Not Resolved]
  - Weight increased [Unknown]
  - Pyrexia [Not Recovered/Not Resolved]
  - Product dose omission issue [Unknown]
  - Gastrointestinal disorder [Not Recovered/Not Resolved]

NARRATIVE: CASE EVENT DATE: 20200519
